FAERS Safety Report 13087706 (Version 1)
Quarter: 2017Q1

REPORT INFORMATION
  Report Type: Spontaneous
  Country: US (occurrence: US)
  Receive Date: 20170105
  Receipt Date: 20170105
  Transmission Date: 20170428
  Serious: Yes (Other)
  Sender: FDA-Public Use
  Company Number: US-ARBOR PHARMACEUTICALS, LLC-US-2017ARB000001

PATIENT

DRUGS (6)
  1. HORIZANT [Suspect]
     Active Substance: GABAPENTIN ENACARBIL
     Dosage: 900 MG, QD
     Route: 048
     Dates: end: 20161225
  2. LOSARTAN. [Concomitant]
     Active Substance: LOSARTAN
     Indication: HYPERTENSION
     Dosage: UNK
  3. HYDROCHLOORTHIAZIDE [Concomitant]
     Active Substance: HYDROCHLOROTHIAZIDE
     Indication: PRODUCT USED FOR UNKNOWN INDICATION
     Dosage: UNK
  4. HORIZANT [Suspect]
     Active Substance: GABAPENTIN ENACARBIL
     Dosage: 600 MG, QD
     Route: 048
     Dates: start: 20161226
  5. HORIZANT [Suspect]
     Active Substance: GABAPENTIN ENACARBIL
     Indication: ANTIINFLAMMATORY THERAPY
     Dosage: 300 MG, QD
     Route: 048
     Dates: start: 20161128
  6. HORIZANT [Suspect]
     Active Substance: GABAPENTIN ENACARBIL
     Indication: SCIATICA
     Dosage: 600 MG, QD
     Route: 048

REACTIONS (7)
  - Decreased appetite [Unknown]
  - Abasia [Unknown]
  - Lethargy [Unknown]
  - Heart rate increased [Unknown]
  - Nausea [Unknown]
  - Off label use [Unknown]
  - Hypotension [Unknown]

NARRATIVE: CASE EVENT DATE: 201612
